FAERS Safety Report 23726192 (Version 2)
Quarter: 2024Q2

REPORT INFORMATION
  Report Type: Spontaneous
  Country: NZ (occurrence: NZ)
  Receive Date: 20240410
  Receipt Date: 20240417
  Transmission Date: 20240716
  Serious: Yes (Life-Threatening, Other)
  Sender: FDA-Public Use
  Company Number: NZ-MLMSERVICE-20240325-4906615-1

PATIENT
  Age: 18 Year
  Sex: Male

DRUGS (6)
  1. AMITRIPTYLINE [Suspect]
     Active Substance: AMITRIPTYLINE
     Dosage: CONSUMED UNKNOWN, BUT LARGE, AMOUNTS
  2. CLONAZEPAM [Suspect]
     Active Substance: CLONAZEPAM
     Dosage: CONSUMED UNKNOWN, BUT LARGE, AMOUNTS
  3. PROMETHAZINE [Suspect]
     Active Substance: PROMETHAZINE HYDROCHLORIDE
     Dosage: CONSUMED UNKNOWN, BUT LARGE, AMOUNTS
  4. ZOPICLONE [Suspect]
     Active Substance: ZOPICLONE
     Dosage: CONSUMED UNKNOWN, BUT LARGE, AMOUNTS
  5. ACETAMINOPHEN [Suspect]
     Active Substance: ACETAMINOPHEN
     Dosage: CONSUMED UNKNOWN, BUT LARGE, AMOUNTS
  6. CODEINE PHOSPHATE [Suspect]
     Active Substance: CODEINE PHOSPHATE
     Dosage: CONSUMED UNKNOWN, BUT LARGE, AMOUNTS

REACTIONS (8)
  - Suicide attempt [Unknown]
  - Decubitus ulcer [Recovering/Resolving]
  - Loss of consciousness [Recovered/Resolved]
  - Nerve compression [Recovering/Resolving]
  - Overdose [Recovered/Resolved]
  - Hypoxic-ischaemic encephalopathy [Recovering/Resolving]
  - Coma [Recovering/Resolving]
  - Brain injury [Recovering/Resolving]
